FAERS Safety Report 20692845 (Version 2)
Quarter: 2022Q2

REPORT INFORMATION
  Report Type: Spontaneous
  Country: PT (occurrence: PT)
  Receive Date: 20220409
  Receipt Date: 20220512
  Transmission Date: 20220720
  Serious: Yes (Other)
  Sender: FDA-Public Use
  Company Number: None

PATIENT
  Age: 47 Year
  Sex: Female

DRUGS (6)
  1. DULOXETINE [Interacting]
     Active Substance: DULOXETINE
     Indication: Depression
     Dosage: 60 MGX2/DAY WHICH WAS REDUCED TO 60 MG/DAY BY MEDICAL INDICATION; WAS LATER SUSPENDED
     Route: 048
     Dates: start: 202202, end: 20220331
  2. ANAFRANIL [Suspect]
     Active Substance: CLOMIPRAMINE HYDROCHLORIDE
     Indication: Depression
     Dosage: 20 MG/DAY FOR ONE WEEK AND INCREASE TO 20 X 2/DAY IN THE SECOND WEEK ON MEDICAL ADVICE
     Route: 048
     Dates: start: 20220309
  3. QUETIAPINE [Concomitant]
     Active Substance: QUETIAPINE
     Dosage: UNKNOWN
     Route: 048
  4. OLANZAPINE [Concomitant]
     Active Substance: OLANZAPINE
     Dosage: UNKNOWN. SPORADIC USE
     Route: 048
  5. ALPRAZOLAM [Concomitant]
     Active Substance: ALPRAZOLAM
     Dosage: 1 MILLIGRAM DAILY;
     Route: 048
  6. LAMOTRIGINE [Concomitant]
     Active Substance: LAMOTRIGINE
     Dosage: 25 MG DAILY. INCREASED DOSE FROM 25MG TO 50MG AFTER ADR
     Route: 048

REACTIONS (16)
  - Blood pressure increased [Unknown]
  - Dizziness [Unknown]
  - Blindness transient [Unknown]
  - Inappropriate affect [Recovered/Resolved]
  - Hypoacusis [Unknown]
  - Tinnitus [Unknown]
  - Urticaria [Unknown]
  - Speech disorder [Recovered/Resolved]
  - Dyschromatopsia [Unknown]
  - Drug interaction [Unknown]
  - Pain [Unknown]
  - Anxiety [Recovered/Resolved]
  - Headache [Unknown]
  - Photosensitivity reaction [Unknown]
  - Aggression [Unknown]
  - Constipation [Unknown]

NARRATIVE: CASE EVENT DATE: 20220201
